FAERS Safety Report 8847138 (Version 1)
Quarter: 2012Q4

REPORT INFORMATION
  Report Type: 
  Country: TR (occurrence: TR)
  Receive Date: 20121018
  Receipt Date: 20121018
  Transmission Date: 20130627
  Serious: Yes (Hospitalization)
  Sender: FDA-Public Use
  Company Number: TR-US-EMD SERONO, INC.-7167750

PATIENT
  Sex: Female
  Weight: 64 kg

DRUGS (12)
  1. REBIF [Suspect]
     Indication: MULTIPLE SCLEROSIS
     Route: 058
     Dates: start: 200608
  2. NOOTROPIL [Suspect]
     Indication: DIZZINESS
     Route: 048
     Dates: start: 200608
  3. SERTRALINE [Suspect]
     Indication: DEPRESSION
     Route: 048
     Dates: start: 200608
  4. DEPAKIN [Suspect]
     Indication: MUSCLE CONTRACTIONS INVOLUNTARY
     Route: 048
     Dates: start: 201008
  5. LYRICA [Suspect]
     Indication: NEURALGIA
     Route: 048
     Dates: start: 201008
  6. NEURONTIN [Suspect]
     Indication: MUSCLE CONTRACTIONS INVOLUNTARY
     Route: 048
     Dates: start: 201008
  7. DILATREND [Suspect]
     Indication: TENSION
     Route: 048
     Dates: start: 201008
  8. IMURAN [Suspect]
     Indication: MULTIPLE SCLEROSIS
     Route: 048
     Dates: start: 201008
  9. TEGRETOL [Suspect]
     Indication: NEURALGIA
     Route: 048
     Dates: start: 201008
  10. BENEXOL [Suspect]
     Indication: HYPOVITAMINOSIS
     Route: 048
     Dates: start: 201008
  11. LIORESAL [Suspect]
     Indication: MUSCLE CONTRACTIONS INVOLUNTARY
     Dates: start: 201008
  12. SIRDALUD [Suspect]
     Indication: MUSCLE SPASMS
     Route: 048
     Dates: start: 201008

REACTIONS (2)
  - Muscle contractions involuntary [Recovering/Resolving]
  - Limb immobilisation [Recovering/Resolving]
